FAERS Safety Report 5801544-8 (Version None)
Quarter: 2008Q3

REPORT INFORMATION
  Report Type: 
  Country: None (occurrence: None)
  Receive Date: 20080703
  Receipt Date: 20080703
  Transmission Date: 20090109
  Serious: No
  Sender: FDA-Public Use
  Company Number: None

PATIENT
  Age: 48 Year
  Sex: Male
  Weight: 70.3075 kg

DRUGS (1)
  1. RANITIDINE [Suspect]
     Indication: PANCREATITIS
     Dosage: 150 MG 3 TIMES A DAY PO
     Route: 048
     Dates: start: 20060301

REACTIONS (2)
  - AMPHETAMINES POSITIVE [None]
  - DRUG SCREEN POSITIVE [None]
